FAERS Safety Report 15143123 (Version 1)
Quarter: 2018Q3

REPORT INFORMATION
  Report Type: Report from Study
  Country: PL (occurrence: PL)
  Receive Date: 20180713
  Receipt Date: 20180713
  Transmission Date: 20181010
  Serious: Yes (Death, Other)
  Sender: FDA-Public Use
  Company Number: PL-TEVA-2018-PL-924669

PATIENT

DRUGS (2)
  1. FENTANYL. [Suspect]
     Active Substance: FENTANYL
     Dosage: FENTANYL FORM OF ADMIN UNKNOWN
     Route: 065
  2. CLARITHROMYCIN. [Interacting]
     Active Substance: CLARITHROMYCIN
     Route: 065

REACTIONS (4)
  - Death [Fatal]
  - Respiratory depression [Unknown]
  - Drug interaction [Unknown]
  - Drug metabolising enzyme decreased [Unknown]
